FAERS Safety Report 8988833 (Version 2)
Quarter: 2012Q4

REPORT INFORMATION
  Report Type: 
  Country: RS (occurrence: RS)
  Receive Date: 20121228
  Receipt Date: 20121229
  Transmission Date: 20130627
  Serious: Yes (Other)
  Sender: FDA-Public Use
  Company Number: RS-009507513-1212SRB010382

PATIENT
  Age: 18 Year
  Sex: Male

DRUGS (2)
  1. NASONEX [Suspect]
     Indication: RHINITIS ALLERGIC
     Dosage: 50 Microgram, bid
     Route: 045
     Dates: start: 20121211, end: 20121213
  2. AUGMENTIN [Concomitant]
     Indication: SINUSITIS
     Dosage: 1750mg+250mg, qd; strength 875+125 mg
     Route: 048
     Dates: start: 20121203, end: 20121210

REACTIONS (2)
  - Generalised erythema [Recovered/Resolved]
  - Urticaria [Recovered/Resolved]
